FAERS Safety Report 6834948-5 (Version None)
Quarter: 2010Q3

REPORT INFORMATION
  Report Type: 
  Country: None (occurrence: None)
  Receive Date: 20100712
  Receipt Date: 20070418
  Transmission Date: 20110219
  Serious: No
  Sender: FDA-Public Use
  Company Number: US-PFIZER INC-2007032083

PATIENT
  Sex: Female
  Weight: 52.16 kg

DRUGS (3)
  1. CHANTIX [Suspect]
     Indication: SMOKING CESSATION THERAPY
     Route: 048
     Dates: start: 20070101, end: 20070101
  2. ZOLOFT [Concomitant]
     Route: 048
  3. VITAMIN B [Concomitant]
     Indication: GINGIVAL PAIN

REACTIONS (2)
  - GINGIVAL DISORDER [None]
  - PAIN IN JAW [None]
